FAERS Safety Report 9774619 (Version 1)
Quarter: 2013Q4

REPORT INFORMATION
  Report Type: Spontaneous
  Country: US (occurrence: None)
  Receive Date: 20131219
  Receipt Date: 20131219
  Transmission Date: 20140711
  Serious: Yes (Hospitalization)
  Sender: FDA-Public Use
  Company Number: None

PATIENT
  Age: 92 Year
  Sex: Female
  Weight: 49.9 kg

DRUGS (2)
  1. AMBIEN [Suspect]
     Indication: SLEEP DISORDER
     Dosage: 1 TABLET QHS ON M,W, F ORAL
     Route: 048
  2. REMERON [Concomitant]

REACTIONS (8)
  - Nausea [None]
  - Malaise [None]
  - Dehydration [None]
  - Hallucination [None]
  - Hallucination, visual [None]
  - Paranoia [None]
  - Initial insomnia [None]
  - Visual impairment [None]
